FAERS Safety Report 7609977 (Version 32)
Quarter: 2024Q2

REPORT INFORMATION
  Report Type: Report from Study
  Country: JP (occurrence: JP)
  Receive Date: 20100928
  Receipt Date: 20240402
  Transmission Date: 20240716
  Serious: Yes (Hospitalization, Other)
  Sender: FDA-Public Use
  Company Number: JP-JNJFOC-20100907113

PATIENT
  Age: 49 Year
  Sex: Male

DRUGS (54)
  1. PREZISTA [Suspect]
     Active Substance: DARUNAVIR ETHANOLATE
     Indication: HIV infection
     Route: 048
     Dates: start: 20061111
  2. PREZISTA [Suspect]
     Active Substance: DARUNAVIR ETHANOLATE
     Route: 048
     Dates: start: 20170223, end: 20240202
  3. INTELENCE [Suspect]
     Active Substance: ETRAVIRINE
     Indication: HIV infection
     Route: 048
     Dates: start: 20081011
  4. INTELENCE [Suspect]
     Active Substance: ETRAVIRINE
     Indication: HIV infection
     Route: 048
     Dates: start: 20170223, end: 20220927
  5. NORVIR [Suspect]
     Active Substance: RITONAVIR
     Indication: HIV infection
     Route: 048
     Dates: start: 19961218, end: 19970924
  6. NORVIR [Suspect]
     Active Substance: RITONAVIR
     Indication: HIV infection
     Route: 048
     Dates: start: 19990819
  7. NORVIR [Suspect]
     Active Substance: RITONAVIR
     Indication: HIV infection
     Route: 048
     Dates: start: 20110608
  8. NORVIR [Suspect]
     Active Substance: RITONAVIR
     Indication: HIV infection
     Route: 048
     Dates: start: 20170223, end: 20240202
  9. NORVIR [Suspect]
     Active Substance: RITONAVIR
     Indication: HIV infection
     Route: 048
     Dates: start: 20000401, end: 20001228
  10. NORVIR [Suspect]
     Active Substance: RITONAVIR
     Indication: HIV infection
     Route: 048
     Dates: start: 20060411, end: 20110608
  11. VIDEX [Suspect]
     Active Substance: DIDANOSINE
     Indication: HIV infection
     Route: 048
     Dates: start: 19951018, end: 19951206
  12. VIDEX [Suspect]
     Active Substance: DIDANOSINE
     Indication: HIV infection
     Route: 048
     Dates: start: 19951206, end: 19960313
  13. VIDEX [Suspect]
     Active Substance: DIDANOSINE
     Indication: HIV infection
     Route: 048
     Dates: start: 19960313, end: 19970924
  14. VIDEX [Suspect]
     Active Substance: DIDANOSINE
     Indication: HIV infection
     Route: 048
     Dates: start: 19960724, end: 19970924
  15. VIDEX [Suspect]
     Active Substance: DIDANOSINE
     Indication: HIV infection
     Route: 048
     Dates: start: 20001229, end: 20060410
  16. KALETRA [Suspect]
     Active Substance: LOPINAVIR\RITONAVIR
     Indication: HIV infection
     Route: 048
     Dates: start: 20001229, end: 20060410
  17. DESCOVY [Suspect]
     Active Substance: EMTRICITABINE\TENOFOVIR ALAFENAMIDE FUMARATE
     Indication: HIV infection
     Route: 048
     Dates: start: 20170223, end: 20240202
  18. ISENTRESS [Suspect]
     Active Substance: RALTEGRAVIR POTASSIUM
     Indication: HIV infection
     Route: 048
     Dates: start: 20080401, end: 20220927
  19. TIVICAY [Concomitant]
     Active Substance: DOLUTEGRAVIR SODIUM
     Indication: HIV infection
     Route: 048
     Dates: start: 20220928, end: 20240202
  20. PIFELTRO [Concomitant]
     Active Substance: DORAVIRINE
     Indication: HIV infection
     Route: 048
     Dates: start: 20220928
  21. TRUVADA [Concomitant]
     Active Substance: EMTRICITABINE\TENOFOVIR DISOPROXIL FUMARATE
     Indication: HIV infection
     Route: 048
     Dates: start: 20060411, end: 20170222
  22. TRUVADA [Concomitant]
     Active Substance: EMTRICITABINE\TENOFOVIR DISOPROXIL FUMARATE
     Route: 048
     Dates: start: 20170223
  23. ZERIT [Concomitant]
     Active Substance: STAVUDINE
     Indication: HIV infection
     Route: 048
     Dates: start: 19970924, end: 19990818
  24. ZERIT [Concomitant]
     Active Substance: STAVUDINE
     Indication: HIV infection
     Route: 048
     Dates: start: 20001229, end: 20060410
  25. LEXIVA [Concomitant]
     Active Substance: FOSAMPRENAVIR CALCIUM
     Indication: HIV infection
     Route: 048
     Dates: start: 20051111, end: 20060410
  26. INVIRASE [Concomitant]
     Active Substance: SAQUINAVIR MESYLATE
     Indication: HIV infection
     Route: 048
     Dates: start: 19990819, end: 20001228
  27. EPIVIR [Concomitant]
     Active Substance: LAMIVUDINE
     Indication: HIV infection
     Route: 048
     Dates: start: 19970924, end: 19990818
  28. ZIAGEN [Concomitant]
     Active Substance: ABACAVIR SULFATE
     Indication: HIV infection
     Route: 048
     Dates: start: 19990819, end: 20001228
  29. EFAVIRENZ [Concomitant]
     Active Substance: EFAVIRENZ
     Indication: HIV infection
     Route: 048
     Dates: start: 19990819, end: 20040331
  30. VIRACEPT [Concomitant]
     Active Substance: NELFINAVIR MESYLATE
     Indication: HIV infection
     Route: 048
     Dates: start: 19970924, end: 19990818
  31. AMPRENAVIR [Concomitant]
     Active Substance: AMPRENAVIR
     Indication: HIV infection
     Route: 048
     Dates: start: 20040401, end: 20051110
  32. RETROVIR [Concomitant]
     Active Substance: ZIDOVUDINE
     Indication: HIV infection
     Route: 048
     Dates: start: 19960313, end: 19970924
  33. URSO [Concomitant]
     Active Substance: URSODIOL
     Indication: Liver disorder
     Route: 048
     Dates: start: 20070401, end: 20150224
  34. URSO [Concomitant]
     Active Substance: URSODIOL
     Indication: Liver disorder
     Route: 048
     Dates: start: 20150826
  35. CROSS EIGHT M [Concomitant]
     Active Substance: ANTIHEMOPHILIC FACTOR HUMAN
     Indication: Factor VIII deficiency
     Dosage: 1000IUX2TIMES/MONTH
     Route: 065
     Dates: end: 20100804
  36. ADVATE [Concomitant]
     Active Substance: ANTIHEMOPHILIC FACTOR, HUMAN RECOMBINANT
     Indication: Factor VIII deficiency
     Route: 042
     Dates: start: 20100805
  37. ADVATE [Concomitant]
     Active Substance: ANTIHEMOPHILIC FACTOR, HUMAN RECOMBINANT
     Indication: Factor VIII deficiency
     Route: 042
     Dates: start: 20140401
  38. ADVATE [Concomitant]
     Active Substance: ANTIHEMOPHILIC FACTOR, HUMAN RECOMBINANT
     Dosage: UNKNOWN
     Route: 042
     Dates: start: 20170223, end: 20181127
  39. LIVACT [ISOLEUCINE;LEUCINE;VALINE] [Concomitant]
     Indication: Liver disorder
     Dosage: 1 PACKAGE
     Route: 048
     Dates: start: 20090803
  40. RABEPRAZOLE SODIUM [Concomitant]
     Active Substance: RABEPRAZOLE SODIUM
     Indication: Gastritis
     Route: 048
     Dates: start: 20080924, end: 20120331
  41. RABEPRAZOLE SODIUM [Concomitant]
     Active Substance: RABEPRAZOLE SODIUM
     Route: 048
     Dates: start: 20120401, end: 20130821
  42. RABEPRAZOLE SODIUM [Concomitant]
     Active Substance: RABEPRAZOLE SODIUM
     Route: 048
     Dates: start: 20140319
  43. CARBOCYSTEINE [Concomitant]
     Active Substance: CARBOCYSTEINE
     Indication: Bronchitis chronic
     Route: 048
     Dates: start: 20090617, end: 20150224
  44. CARBOCYSTEINE [Concomitant]
     Active Substance: CARBOCYSTEINE
     Indication: Bronchitis chronic
     Dosage: UNKNOWN
     Route: 048
     Dates: start: 20170223, end: 20181225
  45. CARBOCYSTEINE [Concomitant]
     Active Substance: CARBOCYSTEINE
     Indication: Bronchitis chronic
     Dosage: UNKNOWN
     Route: 048
     Dates: start: 20190227
  46. ADYNOVATE [Concomitant]
     Active Substance: ANTIHEMOPHILIC FACTOR, HUMAN RECOMBINANT
     Indication: Factor VIII deficiency
     Dosage: UNKNOWN
     Route: 065
     Dates: start: 20181128
  47. VESICARE [Concomitant]
     Active Substance: SOLIFENACIN SUCCINATE
     Dosage: UNKNOWN
     Route: 048
     Dates: start: 20191030
  48. MEROPENEM [Concomitant]
     Active Substance: MEROPENEM
     Indication: Pyelonephritis
     Route: 041
     Dates: start: 20150407, end: 20150410
  49. MEROPENEM [Concomitant]
     Active Substance: MEROPENEM
     Indication: Pyelonephritis
     Route: 041
     Dates: start: 20150411, end: 20150415
  50. AMIKACIN SULFATE [Concomitant]
     Active Substance: AMIKACIN SULFATE
     Indication: Pyelonephritis
     Route: 065
     Dates: start: 20150410, end: 20150415
  51. FAROPENEM SODIUM [Concomitant]
     Active Substance: FAROPENEM SODIUM
     Indication: Pyelonephritis
     Route: 048
     Dates: start: 20150416, end: 20150429
  52. ASTAT [LANOCONAZOLE] [Concomitant]
     Indication: Tinea infection
     Dosage: UNKNOWN
     Route: 065
     Dates: start: 20170223
  53. BONALON [Concomitant]
     Active Substance: ALENDRONATE SODIUM
     Indication: Osteoporosis
     Dosage: UNKNOWN
     Route: 048
     Dates: start: 20170628
  54. BIKTARVY [Concomitant]
     Active Substance: BICTEGRAVIR SODIUM\EMTRICITABINE\TENOFOVIR ALAFENAMIDE FUMARATE
     Indication: HIV infection
     Dates: start: 20240202

REACTIONS (8)
  - Hepatocellular carcinoma [Not Recovered/Not Resolved]
  - Pyelonephritis [Recovered/Resolved]
  - Drug resistance [Not Recovered/Not Resolved]
  - Hepatocellular carcinoma [Not Recovered/Not Resolved]
  - Hyperbilirubinaemia [Recovered/Resolved]
  - Dyslipidaemia [Recovered/Resolved]
  - Anaemia [Recovered/Resolved]
  - Osteoporosis [Not Recovered/Not Resolved]

NARRATIVE: CASE EVENT DATE: 20061128
